FAERS Safety Report 5138159-3 (Version None)
Quarter: 2006Q4

REPORT INFORMATION
  Report Type: 
  Country: None (occurrence: None)
  Receive Date: 20061030
  Receipt Date: 20061016
  Transmission Date: 20070319
  Serious: Yes (Hospitalization)
  Sender: FDA-Public Use
  Company Number: AU-JNJFOC-20060803571

PATIENT
  Age: 27 Year
  Sex: Female

DRUGS (4)
  1. TRAMADOL HCL [Suspect]
     Indication: PAIN
     Route: 048
  2. SALINE [Suspect]
     Route: 042
  3. SALINE [Suspect]
     Route: 042
  4. SALINE [Suspect]
     Indication: DRUG USE FOR UNKNOWN INDICATION
     Route: 042

REACTIONS (3)
  - CONVULSION [None]
  - DEMYELINATION [None]
  - INAPPROPRIATE ANTIDIURETIC HORMONE SECRETION [None]
